FAERS Safety Report 24465252 (Version 1)
Quarter: 2024Q4

REPORT INFORMATION
  Report Type: Report from Study
  Country: US (occurrence: US)
  Receive Date: 20241018
  Receipt Date: 20241018
  Transmission Date: 20250115
  Serious: No
  Sender: ROCHE
  Company Number: US-ROCHE-3510667

PATIENT
  Sex: Female
  Weight: 57.15 kg

DRUGS (8)
  1. XOLAIR [Suspect]
     Active Substance: OMALIZUMAB
     Indication: Idiopathic urticaria
     Route: 058
  2. XOLAIR [Suspect]
     Active Substance: OMALIZUMAB
  3. CETIRIZINE [Concomitant]
     Active Substance: CETIRIZINE HYDROCHLORIDE
  4. CYCLOBENZAPRINE [Concomitant]
     Active Substance: CYCLOBENZAPRINE
  5. FLUTICASONE [Concomitant]
     Active Substance: FLUTICASONE
  6. FAMOTIDINE [Concomitant]
     Active Substance: FAMOTIDINE
  7. EPIPEN [Concomitant]
     Active Substance: EPINEPHRINE
  8. METOPROLOL [Concomitant]
     Active Substance: METOPROLOL

REACTIONS (3)
  - Off label use [Unknown]
  - Off label use [Unknown]
  - No adverse event [Unknown]
